FAERS Safety Report 12833254 (Version 1)
Quarter: 2016Q4

REPORT INFORMATION
  Report Type: Spontaneous
  Country: US (occurrence: US)
  Receive Date: 20161010
  Receipt Date: 20161010
  Transmission Date: 20170207
  Serious: Yes (Hospitalization, Other)
  Sender: FDA-Public Use
  Company Number: US-JNJFOC-20161002830

PATIENT
  Age: 68 Year
  Sex: Male
  Weight: 97.51 kg

DRUGS (6)
  1. ADEMPAS [Suspect]
     Active Substance: RIOCIGUAT
     Indication: PULMONARY HYPERTENSION
     Route: 065
  2. ADEMPAS [Suspect]
     Active Substance: RIOCIGUAT
     Indication: PULMONARY HYPERTENSION
     Route: 065
  3. XARELTO [Suspect]
     Active Substance: RIVAROXABAN
     Indication: PRODUCT USED FOR UNKNOWN INDICATION
     Route: 048
  4. ADEMPAS [Suspect]
     Active Substance: RIOCIGUAT
     Indication: PULMONARY HYPERTENSION
     Route: 065
  5. COUMADIN [Concomitant]
     Active Substance: WARFARIN SODIUM
     Route: 065
  6. ADEMPAS [Suspect]
     Active Substance: RIOCIGUAT
     Indication: PULMONARY HYPERTENSION
     Route: 065
     Dates: start: 20150724

REACTIONS (27)
  - Dyspepsia [Unknown]
  - Haemorrhage [Unknown]
  - Abnormal weight gain [Unknown]
  - Renal failure [Unknown]
  - Haemoglobin decreased [Recovered/Resolved]
  - Pulmonary hypertension [Unknown]
  - Bladder cancer [Unknown]
  - Fatigue [Unknown]
  - Blood count abnormal [Unknown]
  - Angiopathy [Unknown]
  - Insomnia [Unknown]
  - Abdominal discomfort [Unknown]
  - Oedema [Unknown]
  - Appendicitis [Unknown]
  - Sensation of foreign body [Unknown]
  - Cough [Unknown]
  - Haemoptysis [Unknown]
  - Renal disorder [Unknown]
  - Nasopharyngitis [Unknown]
  - Appendicectomy [Unknown]
  - Lung disorder [Unknown]
  - Cardiac disorder [Unknown]
  - Red blood cell count decreased [Unknown]
  - Oxygen saturation decreased [Recovering/Resolving]
  - Blood iron decreased [Unknown]
  - Intestinal mass [Unknown]
  - Haemoglobin decreased [Unknown]

NARRATIVE: CASE EVENT DATE: 20151101
